FAERS Safety Report 8731871 (Version 2)
Quarter: 2012Q4

REPORT INFORMATION
  Report Type: 
  Country: GB (occurrence: GB)
  Receive Date: 20120820
  Receipt Date: 20120829
  Transmission Date: 20130627
  Serious: Yes (Other)
  Sender: FDA-Public Use
  Company Number: GB-BAYER-2012-085073

PATIENT
  Sex: Male

DRUGS (1)
  1. LEVITRA 10 MG FILM-COATED TABLETS [Suspect]

REACTIONS (4)
  - Renal failure acute [None]
  - Malaise [None]
  - Dizziness [None]
  - Dyspnoea [None]
